FAERS Safety Report 13201451 (Version 1)
Quarter: 2017Q1

REPORT INFORMATION
  Report Type: Spontaneous
  Country: US (occurrence: US)
  Receive Date: 20170208
  Receipt Date: 20170208
  Transmission Date: 20170428
  Serious: No
  Sender: FDA-Public Use
  Company Number: US-AMGEN-USASP2016069159

PATIENT

DRUGS (6)
  1. TAMONE [Concomitant]
     Dosage: UNK
  2. APO TAMOX [Concomitant]
     Dosage: UNK
  3. TAXOTERE [Concomitant]
     Active Substance: DOCETAXEL
     Dosage: UNK
  4. NEULASTA [Suspect]
     Active Substance: PEGFILGRASTIM
     Indication: PRODUCT USED FOR UNKNOWN INDICATION
     Dosage: UNK UNK, UNK
     Route: 065
  5. TAMOFEN [Concomitant]
     Active Substance: TAMOXIFEN CITRATE
     Dosage: UNK
  6. NOLVADEX                           /00388701/ [Concomitant]
     Active Substance: TAMOXIFEN CITRATE
     Dosage: UNK

REACTIONS (1)
  - Alopecia [Unknown]
